FAERS Safety Report 21159819 (Version 1)
Quarter: 2022Q3

REPORT INFORMATION
  Report Type: Spontaneous
  Country: GB (occurrence: GB)
  Receive Date: 20220802
  Receipt Date: 20220802
  Transmission Date: 20221026
  Serious: Yes (Other)
  Sender: FDA-Public Use
  Company Number: GB-MHRA-MED-202207291139516430-VZWLK

PATIENT
  Sex: Female

DRUGS (1)
  1. FELODIPINE [Suspect]
     Active Substance: FELODIPINE
     Indication: Hypertension
     Dosage: 20 MILLIGRAM (20MG)
     Route: 065
     Dates: end: 20220504

REACTIONS (5)
  - Illness [Recovered/Resolved]
  - Abdominal distension [Recovered/Resolved]
  - Dysphagia [Recovered/Resolved]
  - Gastrooesophageal reflux disease [Recovered/Resolved]
  - Joint swelling [Recovered/Resolved]
